FAERS Safety Report 4982732-X (Version None)
Quarter: 2006Q2

REPORT INFORMATION
  Report Type: 
  Country: None (occurrence: None)
  Receive Date: 20060425
  Receipt Date: 20060419
  Transmission Date: 20061013
  Serious: Yes (Disabling)
  Sender: FDA-Public Use
  Company Number: US-MERCK-0604USA03208

PATIENT
  Age: 54 Year
  Sex: Female

DRUGS (4)
  1. FOSAMAX [Suspect]
     Indication: OSTEOPENIA
     Route: 048
     Dates: start: 20050101, end: 20060410
  2. IMITREX [Concomitant]
     Route: 065
  3. ZANTAC [Concomitant]
     Route: 065
  4. PHENERGAN TABLETS/SUPPOSITORIES [Concomitant]
     Route: 065

REACTIONS (4)
  - IRRITABLE BOWEL SYNDROME [None]
  - MUSCULAR WEAKNESS [None]
  - NEURALGIA [None]
  - PAIN IN EXTREMITY [None]
